FAERS Safety Report 21190720 (Version 1)
Quarter: 2022Q3

REPORT INFORMATION
  Report Type: Spontaneous
  Country: US (occurrence: None)
  Receive Date: 20220809
  Receipt Date: 20220809
  Transmission Date: 20221026
  Serious: No
  Sender: FDA-Public Use
  Company Number: None

PATIENT
  Sex: 0

DRUGS (4)
  1. SOOLANTRA [Suspect]
     Active Substance: IVERMECTIN
     Indication: Rosacea
     Dosage: OTHER QUANTITY : 1 PEA-SIZE;?FREQUENCY : DAILY;?
     Route: 061
     Dates: start: 20220809, end: 20220809
  2. NAPROXEN [Concomitant]
     Active Substance: NAPROXEN
  3. ALBUTEROL [Concomitant]
     Active Substance: ALBUTEROL
  4. LUTERA [Concomitant]
     Active Substance: ETHINYL ESTRADIOL\LEVONORGESTREL

REACTIONS (8)
  - Chest pain [None]
  - Arthralgia [None]
  - Headache [None]
  - Dizziness [None]
  - Visual impairment [None]
  - Feeling hot [None]
  - Anxiety [None]
  - Adverse drug reaction [None]

NARRATIVE: CASE EVENT DATE: 20220809
